FAERS Safety Report 5702477-8 (Version None)
Quarter: 2008Q2

REPORT INFORMATION
  Report Type: 
  Country: None (occurrence: None)
  Receive Date: 20080410
  Receipt Date: 20080410
  Transmission Date: 20081010
  Serious: Yes (Hospitalization)
  Sender: FDA-Public Use
  Company Number: None

PATIENT
  Sex: Male
  Weight: 112.4921 kg

DRUGS (2)
  1. LYRICA [Suspect]
     Indication: MUSCULAR DYSTROPHY
     Dosage: 150 MG BID PO
     Route: 048
  2. LYRICA [Suspect]
     Indication: PAIN
     Dosage: 150 MG BID PO
     Route: 048

REACTIONS (2)
  - DEEP VEIN THROMBOSIS [None]
  - PULMONARY EMBOLISM [None]
